FAERS Safety Report 14089143 (Version 1)
Quarter: 2017Q4

REPORT INFORMATION
  Report Type: Report from Study
  Country: US (occurrence: US)
  Receive Date: 20171013
  Receipt Date: 20171013
  Transmission Date: 20180321
  Serious: Yes (Hospitalization, Other)
  Sender: FDA-Public Use
  Company Number: US-PFIZER INC-2017440875

PATIENT
  Age: 62 Year
  Sex: Male
  Weight: 59 kg

DRUGS (16)
  1. OXALIPLATIN. [Suspect]
     Active Substance: OXALIPLATIN
     Dosage: 146 MG, CYCLIC
     Dates: start: 20170914
  2. FLOUROURACIL [Suspect]
     Active Substance: FLUOROURACIL
     Dosage: 2060 MG, CYCLIC
     Dates: start: 20170914
  3. OXYCONTIN [Concomitant]
     Active Substance: OXYCODONE HYDROCHLORIDE
     Dosage: 20 MG, ONCE EVERY 12 HOURS
     Route: 048
  4. LOVENOX [Concomitant]
     Active Substance: ENOXAPARIN SODIUM
     Dosage: 60 MG, 2X/DAY
  5. CALCIUM FOLINATE [Suspect]
     Active Substance: LEUCOVORIN CALCIUM
     Indication: COLORECTAL CANCER
     Dosage: 712 MG, ONCE EVERY 2 WEEKS
     Route: 042
     Dates: start: 20170831
  6. CALCIUM FOLINATE [Suspect]
     Active Substance: LEUCOVORIN CALCIUM
     Dosage: 688 MG, CYCLIC
     Dates: start: 20170914
  7. SENNA PLUS [Concomitant]
     Active Substance: DOCUSATE SODIUM\SENNOSIDES\SENNOSIDES A AND B
     Dosage: 2 DF, 2X/DAY
     Route: 048
  8. OXALIPLATIN. [Suspect]
     Active Substance: OXALIPLATIN
     Indication: COLORECTAL CANCER
     Dosage: 151 MG, ONCE EVERY 2 WEEKS
     Route: 042
     Dates: start: 20170831
  9. OXYCODONE [Concomitant]
     Active Substance: OXYCODONE
     Indication: BREAKTHROUGH PAIN
     Dosage: 5 MG, AS NEEDED
     Route: 048
  10. COLACE [Concomitant]
     Active Substance: DOCUSATE SODIUM
     Dosage: 2 DF, 2X/DAY
  11. ETBX-011 [Suspect]
     Active Substance: INVESTIGATIONAL PRODUCT
     Dosage: 5X10E11 VIRAL PARTICLES
     Dates: start: 20170913
  12. MILK OF MAGNESIA [Concomitant]
     Active Substance: MAGNESIUM HYDROXIDE
     Dosage: UNK, AS NEEDED
  13. AVELUMAB [Suspect]
     Active Substance: AVELUMAB
     Indication: COLORECTAL CANCER
     Dosage: 664 MG, ONCE EVERY 2 WEEKS
     Route: 042
     Dates: start: 20170830
  14. AVELUMAB [Suspect]
     Active Substance: AVELUMAB
     Dosage: 618 MG, UNK
     Dates: start: 20170913
  15. ETBX-011 [Suspect]
     Active Substance: INVESTIGATIONAL PRODUCT
     Indication: COLORECTAL CANCER
     Dosage: 1X/MONTH, 5X10E11 VIRAL PARTICLES
     Route: 058
     Dates: start: 20170902
  16. FLOUROURACIL [Suspect]
     Active Substance: FLUOROURACIL
     Indication: COLORECTAL CANCER
     Dosage: 2140 MG, ONCE EVERY 2 WEEKS
     Route: 042
     Dates: start: 20170831

REACTIONS (2)
  - Fatigue [Unknown]
  - Lung infection [Unknown]

NARRATIVE: CASE EVENT DATE: 20171001
